FAERS Safety Report 5229743-7 (Version None)
Quarter: 2007Q1

REPORT INFORMATION
  Report Type: 
  Country: None (occurrence: None)
  Receive Date: 20070206
  Receipt Date: 20061201
  Transmission Date: 20070707
  Serious: Yes (Death, Hospitalization)
  Sender: FDA-Public Use
  Company Number: ES-PFIZER INC-2006144179

PATIENT
  Age: 65 Year
  Sex: Male

DRUGS (5)
  1. ADRIAMYCIN PFS [Suspect]
     Indication: PRIMARY EFFUSION LYMPHOMA
  2. VINCRISTINE SULFATE [Suspect]
     Indication: PRIMARY EFFUSION LYMPHOMA
  3. CYCLOPHOSPHAMIDE [Suspect]
     Indication: PRIMARY EFFUSION LYMPHOMA
  4. PREDNISONE [Suspect]
     Indication: PRIMARY EFFUSION LYMPHOMA
  5. LAMIVUDINE [Suspect]
     Indication: PRIMARY EFFUSION LYMPHOMA

REACTIONS (7)
  - ANAEMIA [None]
  - HEPATIC ENCEPHALOPATHY [None]
  - HYPERGLYCAEMIA [None]
  - LIVER FUNCTION TEST ABNORMAL [None]
  - NEUTROPENIA [None]
  - SEPTIC SHOCK [None]
  - THROMBOCYTOPENIA [None]
